FAERS Safety Report 6125630-0 (Version None)
Quarter: 2009Q1

REPORT INFORMATION
  Report Type: 
  Country: None (occurrence: None)
  Receive Date: 20090320
  Receipt Date: 20090313
  Transmission Date: 20090719
  Serious: Yes (Death, Life-Threatening)
  Sender: FDA-Public Use
  Company Number: JP-BAYER-200910774BYL

PATIENT
  Age: 21 Year
  Sex: Male
  Weight: 66 kg

DRUGS (6)
  1. FLUDARA [Suspect]
     Indication: STEM CELL TRANSPLANT
     Dosage: TOTAL DAILY DOSE: 50 MG  UNIT DOSE: 50 MG
     Route: 042
     Dates: start: 20080808, end: 20080813
  2. TACROLIMUS HYDRATE [Suspect]
     Indication: DRUG USE FOR UNKNOWN INDICATION
     Route: 065
     Dates: start: 20080814, end: 20080908
  3. MELPHALAN [Concomitant]
     Indication: STEM CELL TRANSPLANT
     Dosage: AS USED: 240 MG
     Route: 042
     Dates: start: 20080812, end: 20080813
  4. CYTARABINE [Concomitant]
     Indication: STEM CELL TRANSPLANT
     Dosage: AS USED: 3.4 G
     Route: 042
     Dates: start: 20080808, end: 20080811
  5. MYCOPHENOLATE MOFETIL [Concomitant]
     Route: 065
     Dates: start: 20080909, end: 20080930
  6. CYCLOSPORINE [Concomitant]
     Route: 065
     Dates: start: 20080912, end: 20081105

REACTIONS (4)
  - PERICARDIAL EFFUSION [None]
  - STAPHYLOCOCCAL SEPSIS [None]
  - TOXIC ENCEPHALOPATHY [None]
  - VENOOCCLUSIVE LIVER DISEASE [None]
